FAERS Safety Report 15220435 (Version 3)
Quarter: 2018Q3

REPORT INFORMATION
  Report Type: Spontaneous
  Country: CO (occurrence: CO)
  Receive Date: 20180731
  Receipt Date: 20180913
  Transmission Date: 20181010
  Serious: Yes (Other)
  Sender: FDA-Public Use
  Company Number: CO-AEGERION PHARMACEUTICAL, INC-AEGR003892

PATIENT

DRUGS (3)
  1. JUXTAPID [Suspect]
     Active Substance: LOMITAPIDE MESYLATE
     Indication: TYPE IIA HYPERLIPIDAEMIA
     Dosage: 5 MG, QD
     Route: 048
     Dates: start: 201712
  2. LOVASTATINE [Concomitant]
     Active Substance: LOVASTATIN
     Indication: PRODUCT USED FOR UNKNOWN INDICATION
     Dosage: 20 MG, QD
  3. ROSUVASTATINE                      /01588601/ [Concomitant]
     Active Substance: ROSUVASTATIN
     Indication: PRODUCT USED FOR UNKNOWN INDICATION
     Dosage: 10 MG, QD

REACTIONS (3)
  - Gastroenteritis [Recovered/Resolved]
  - Drug administered to patient of inappropriate age [Unknown]
  - Tonsillitis bacterial [Recovered/Resolved]

NARRATIVE: CASE EVENT DATE: 201712
